FAERS Safety Report 6269638-3 (Version None)
Quarter: 2009Q3

REPORT INFORMATION
  Report Type: 
  Country: None (occurrence: None)
  Receive Date: 20090714
  Receipt Date: 20090706
  Transmission Date: 20100115
  Serious: Yes (Other)
  Sender: FDA-Public Use
  Company Number: SPI200900205

PATIENT
  Age: 64 Year
  Sex: Female

DRUGS (4)
  1. AMITIZA [Suspect]
     Indication: CONSTIPATION
     Dosage: 24 MCG, BID; 8 MCG, BID
     Dates: start: 20070101
  2. CYMBALTA [Concomitant]
  3. LITHIUM CARBONATE [Concomitant]
  4. SYNTHROID [Concomitant]

REACTIONS (3)
  - LARGE INTESTINE PERFORATION [None]
  - NEUROPATHY PERIPHERAL [None]
  - POST PROCEDURAL COMPLICATION [None]
